FAERS Safety Report 8947003 (Version 1)
Quarter: 2012Q4

REPORT INFORMATION
  Report Type: 
  Country: IT (occurrence: IT)
  Receive Date: 20121205
  Receipt Date: 20121205
  Transmission Date: 20130627
  Serious: Yes (Death, Other)
  Sender: FDA-Public Use
  Company Number: IT-JNJFOC-20121200197

PATIENT

DRUGS (3)
  1. ITRACONAZOLE [Suspect]
     Indication: ANTIFUNGAL PROPHYLAXIS
     Dosage: started 1- 3 days prior to chemotherapy
     Route: 048
  2. ANTHRACYCLINES [Suspect]
     Indication: ACUTE MYELOID LEUKAEMIA
     Route: 065
  3. CHEMOTHERAPY [Suspect]
     Indication: ACUTE MYELOID LEUKAEMIA
     Route: 065

REACTIONS (7)
  - Death [Fatal]
  - Candidiasis [Unknown]
  - Pyrexia [Unknown]
  - Systemic mycosis [Unknown]
  - Aspergillosis [Unknown]
  - Fungal infection [None]
  - Pyrexia [None]
